FAERS Safety Report 23667999 (Version 1)
Quarter: 2024Q1

REPORT INFORMATION
  Report Type: Other
  Country: JP (occurrence: None)
  Receive Date: 20240325
  Receipt Date: 20240325
  Transmission Date: 20240410
  Serious: Yes (Other)
  Sender: FDA-Public Use
  Company Number: JP-ROCHE-3526494

PATIENT

DRUGS (2)
  1. BEVACIZUMAB [Suspect]
     Active Substance: BEVACIZUMAB
     Indication: Hepatocellular carcinoma
     Route: 042
  2. ATEZOLIZUMAB [Suspect]
     Active Substance: ATEZOLIZUMAB
     Indication: Hepatocellular carcinoma
     Route: 065

REACTIONS (31)
  - Blood creatine phosphokinase increased [Unknown]
  - Neutropenia [Unknown]
  - Aspartate aminotransferase increased [Unknown]
  - Alanine aminotransferase increased [Unknown]
  - Anaemia [Unknown]
  - Palmar-plantar erythrodysaesthesia syndrome [Unknown]
  - Decreased appetite [Unknown]
  - Fatigue [Unknown]
  - Diarrhoea [Unknown]
  - Blood creatinine increased [Unknown]
  - Rhabdomyolysis [Unknown]
  - Leukopenia [Unknown]
  - Blood bilirubin increased [Unknown]
  - Platelet count decreased [Unknown]
  - Hypertension [Unknown]
  - Proteinuria [Unknown]
  - Dysphonia [Unknown]
  - Oedema peripheral [Unknown]
  - Nausea [Unknown]
  - Vomiting [Unknown]
  - Hyperkalaemia [Unknown]
  - Dizziness [Unknown]
  - Hypothyroidism [Unknown]
  - Rash [Unknown]
  - Pruritus [Unknown]
  - Epistaxis [Unknown]
  - Stomatitis [Unknown]
  - Constipation [Unknown]
  - Abdominal pain [Unknown]
  - Dysgeusia [Unknown]
  - Arthritis [Unknown]
